FAERS Safety Report 7125380-8 (Version None)
Quarter: 2010Q4

REPORT INFORMATION
  Report Type: 
  Country: None (occurrence: None)
  Receive Date: 20101129
  Receipt Date: 20101118
  Transmission Date: 20110411
  Serious: Yes (Other)
  Sender: FDA-Public Use
  Company Number: FR-JNJFOC-20101107229

PATIENT
  Age: 42 Year
  Sex: Male

DRUGS (3)
  1. PREZISTA [Suspect]
     Indication: HIV INFECTION
     Dosage: 0-0-2 (2 X 400 MG)
     Route: 048
  2. KALETRA [Suspect]
     Indication: HIV INFECTION
     Dosage: 3 TABLETS ONCE A DAY
     Route: 048
  3. ISENTRESS [Suspect]
     Indication: HIV INFECTION
     Dosage: 2 TABLETS ONCE A DAY
     Route: 048

REACTIONS (4)
  - DRUG PRESCRIBING ERROR [None]
  - HYPOAESTHESIA [None]
  - PARALYSIS [None]
  - PERIPHERAL PARALYSIS [None]
